FAERS Safety Report 9059475 (Version 1)
Quarter: 2013Q1

REPORT INFORMATION
  Report Type: Report from Study
  Country: US (occurrence: US)
  Receive Date: 20130211
  Receipt Date: 20130211
  Transmission Date: 20140127
  Serious: Yes (Other)
  Sender: FDA-Public Use
  Company Number: US-JNJFOC-20130203493

PATIENT
  Sex: 0

DRUGS (1)
  1. SIMPONI [Suspect]
     Indication: PRODUCT USED FOR UNKNOWN INDICATION
     Route: 058

REACTIONS (9)
  - Surgery [Unknown]
  - Fatigue [Unknown]
  - Red blood cell sedimentation rate increased [Unknown]
  - Hepatic enzyme abnormal [Unknown]
  - Musculoskeletal stiffness [Unknown]
  - Pain [Unknown]
  - Swelling [Unknown]
  - Hyperhidrosis [Unknown]
  - Drug dose omission [Unknown]
